FAERS Safety Report 8184794-8 (Version None)
Quarter: 2012Q1

REPORT INFORMATION
  Report Type: 
  Country: None (occurrence: None)
  Receive Date: 20120210
  Receipt Date: 20110816
  Transmission Date: 20120608
  Serious: Yes (Death, Hospitalization)
  Sender: FDA-Public Use
  Company Number: DAV-AE-MTX-11-044

PATIENT
  Age: 51 Year
  Sex: Female

DRUGS (6)
  1. METHOTREXATE [Suspect]
     Indication: RHEUMATOID ARTHRITIS
     Dates: start: 20110414
  2. FOLIC ACID [Concomitant]
  3. PAROXETINE HYDROCHLORIDE [Concomitant]
  4. MULTI-VITAMIN [Concomitant]
  5. HYDROXYCHLOROQUINE SULFATE [Concomitant]
  6. CELECOXIB [Concomitant]

REACTIONS (1)
  - PNEUMONIA [None]
